FAERS Safety Report 8004217-9 (Version None)
Quarter: 2011Q4

REPORT INFORMATION
  Report Type: 
  Country: None (occurrence: None)
  Receive Date: 20111223
  Receipt Date: 20111216
  Transmission Date: 20120403
  Serious: No
  Sender: FDA-Public Use
  Company Number: US-BIOGENIDEC-2011BI028129

PATIENT
  Age: 62 Year
  Sex: Female

DRUGS (3)
  1. TYSABRI [Suspect]
     Indication: MULTIPLE SCLEROSIS
     Route: 042
     Dates: start: 20110613
  2. PROGESTERONE [Concomitant]
     Indication: POSTMENOPAUSE
     Dates: start: 19990101
  3. HORMONE REPLACEMENT THERAPY (NOS) [Concomitant]
     Indication: POSTMENOPAUSE
     Dates: start: 19990101

REACTIONS (8)
  - VISUAL IMPAIRMENT [None]
  - ALTERED VISUAL DEPTH PERCEPTION [None]
  - MACROCYTOSIS [None]
  - ROAD TRAFFIC ACCIDENT [None]
  - VAGINAL HAEMORRHAGE [None]
  - BINOCULAR EYE MOVEMENT DISORDER [None]
  - ANAEMIA [None]
  - FATIGUE [None]
